FAERS Safety Report 17550180 (Version 3)
Quarter: 2020Q2

REPORT INFORMATION
  Report Type: Spontaneous
  Country: US (occurrence: US)
  Receive Date: 20200317
  Receipt Date: 20200513
  Transmission Date: 20200713
  Serious: No
  Sender: FDA-Public Use
  Company Number: US-PFIZER INC-2019137393

PATIENT
  Age: 57 Year
  Sex: Male
  Weight: 132.4 kg

DRUGS (2)
  1. LYRICA [Suspect]
     Active Substance: PREGABALIN
     Dosage: 150 MG, 4X/DAY
     Route: 048
  2. LYRICA [Suspect]
     Active Substance: PREGABALIN
     Indication: NEUROPATHY PERIPHERAL
     Dosage: 150 MG, FOUR TIMES A DAY(1 TAB  OF 150MG CAPSULE, 4 TIMES DAILY)
     Route: 048

REACTIONS (1)
  - Drug ineffective [Unknown]
